FAERS Safety Report 16418716 (Version 1)
Quarter: 2019Q2

REPORT INFORMATION
  Report Type: Spontaneous
  Country: GB (occurrence: GB)
  Receive Date: 20190612
  Receipt Date: 20190612
  Transmission Date: 20190711
  Serious: Yes (Hospitalization)
  Sender: FDA-Public Use
  Company Number: GB-ACCORD-132058

PATIENT
  Age: 59 Year
  Sex: Female
  Weight: 113.65 kg

DRUGS (12)
  1. IRINOTECAN [Suspect]
     Active Substance: IRINOTECAN
     Indication: ADENOCARCINOMA OF COLON
     Dosage: (PART OF MODIFIED DE GRAMONT REGIMEN)
     Route: 042
     Dates: start: 20190314
  2. ALOGLIPTIN. [Concomitant]
     Active Substance: ALOGLIPTIN
  3. PHOSPHATE SANDOZ EFFERVESCENT [Concomitant]
  4. PARACETAMOL [Concomitant]
     Active Substance: ACETAMINOPHEN
  5. DALTEPARIN [Concomitant]
     Active Substance: DALTEPARIN
  6. CHLORPHENAMINE/CHLORPHENAMINE MALEATE/CHLORPHENAMINE RESINATE/CHLORPHENAMINE TANNATE [Concomitant]
  7. TAZOCIN [Concomitant]
     Active Substance: PIPERACILLIN SODIUM\TAZOBACTAM SODIUM
  8. CO-AMOXICLAV [Concomitant]
     Active Substance: AMOXICILLIN\CLAVULANATE POTASSIUM
  9. METOCLOPRAMIDE. [Concomitant]
     Active Substance: METOCLOPRAMIDE
  10. FLUOROURACIL. [Suspect]
     Active Substance: FLUOROURACIL
     Indication: ADENOCARCINOMA OF COLON
     Dosage: PATIENT RECEIVES CHEMOTHERAPY AT TERTIARY CENTRE
     Route: 042
     Dates: start: 20190314
  11. ESOMEPRAZOLE/ESOMEPRAZOLE MAGNESIUM/ESOMEPRAZOLE SODIUM [Concomitant]
  12. CETUXIMAB. [Suspect]
     Active Substance: CETUXIMAB
     Indication: ADENOCARCINOMA OF COLON
     Route: 042

REACTIONS (6)
  - Hypophosphataemia [Unknown]
  - Pyrexia [Unknown]
  - Acute kidney injury [Unknown]
  - Microcytic anaemia [Unknown]
  - Hyperhidrosis [Unknown]
  - Pneumonia [Recovering/Resolving]

NARRATIVE: CASE EVENT DATE: 20190423
